FAERS Safety Report 8925926 (Version 2)
Quarter: 2013Q1

REPORT INFORMATION
  Report Type: Report from Study
  Country: NZ (occurrence: NZ)
  Receive Date: 20121126
  Receipt Date: 20130117
  Transmission Date: 20140127
  Serious: Yes (Hospitalization, Other)
  Sender: FDA-Public Use
  Company Number: PHHY2009NZ05207

PATIENT
  Age: 27 Year
  Sex: Male
  Weight: 64 kg

DRUGS (9)
  1. CLOZARIL [Suspect]
     Indication: SCHIZOPHRENIA
     Dosage: UNK UKN, UNK
     Dates: start: 20081120
  2. CLOZARIL [Suspect]
     Indication: PSYCHOTIC DISORDER
     Dosage: 100 MG, BID
     Route: 048
  3. CLOZARIL [Suspect]
     Dosage: 100 MG, QD
     Dates: end: 20081205
  4. CLOZARIL [Suspect]
     Dosage: 75 MG, DAILY
     Route: 048
     Dates: start: 20120924, end: 20121008
  5. ARIPIPRAZOLE [Concomitant]
     Indication: PSYCHOTIC DISORDER
     Dosage: 15 MG, UNK
     Route: 048
     Dates: end: 20081205
  6. TETRABENAZINE [Concomitant]
     Indication: MOVEMENT DISORDER
     Dosage: 50 MG MANE
     Route: 048
  7. VITAMIN E [Concomitant]
     Indication: MOVEMENT DISORDER
     Dosage: 1000 IU, UNK
     Route: 048
  8. OLANZAPINE [Concomitant]
     Route: 048
  9. CARBAMAZEPINE [Concomitant]
     Route: 048

REACTIONS (24)
  - Myocarditis [Recovered/Resolved]
  - Pyrexia [Recovered/Resolved]
  - Fatigue [Recovered/Resolved]
  - Chest pain [Recovered/Resolved]
  - Malaise [Recovered/Resolved]
  - Electrocardiogram ST segment elevation [Recovered/Resolved]
  - Cardiac enzymes increased [Recovered/Resolved]
  - C-reactive protein increased [Recovered/Resolved]
  - Troponin increased [Recovered/Resolved]
  - Blood creatine phosphokinase increased [Recovered/Resolved]
  - Pericardial effusion [Recovered/Resolved]
  - Bundle branch block left [Recovering/Resolving]
  - Tachycardia [Recovering/Resolving]
  - Dyskinesia [Unknown]
  - Musculoskeletal stiffness [Unknown]
  - Exercise tolerance decreased [Unknown]
  - Haematocrit decreased [Unknown]
  - Red blood cell count decreased [Unknown]
  - Haemoglobin decreased [Unknown]
  - Platelet count increased [Unknown]
  - White blood cell count decreased [Unknown]
  - Neutrophil count increased [Unknown]
  - Monocyte count increased [Unknown]
  - Hypotension [Unknown]
